FAERS Safety Report 8155115-1 (Version None)
Quarter: 2012Q1

REPORT INFORMATION
  Report Type: 
  Country: None (occurrence: None)
  Receive Date: 20120221
  Receipt Date: 20120214
  Transmission Date: 20120608
  Serious: Yes (Life-Threatening, Hospitalization)
  Sender: FDA-Public Use
  Company Number: FR-ROCHE-709709

PATIENT
  Sex: Male
  Weight: 89 kg

DRUGS (19)
  1. ETOPOSIDE [Suspect]
     Indication: MANTLE CELL LYMPHOMA
     Route: 042
     Dates: start: 20100730, end: 20100802
  2. CARMUSTINE [Concomitant]
     Indication: PRODUCT USED FOR UNKNOWN INDICATION
     Dates: start: 20100729, end: 20100729
  3. CISPLATIN [Suspect]
     Route: 042
  4. DEXAMETHASONE [Suspect]
     Indication: MANTLE CELL LYMPHOMA
     Route: 065
  5. HEPARIN [Concomitant]
     Indication: STEM CELL TRANSPLANT
     Route: 042
     Dates: start: 20100727, end: 20100822
  6. ANTIEMETICS [Concomitant]
     Indication: NAUSEA
     Route: 042
     Dates: start: 20100727, end: 20100823
  7. MABTHERA [Suspect]
     Indication: MANTLE CELL LYMPHOMA
     Route: 065
  8. CYTARABINE [Suspect]
     Route: 042
  9. CYTARABINE [Suspect]
     Route: 042
     Dates: start: 20100730, end: 20100803
  10. DEXAMETHASONE [Suspect]
     Route: 065
     Dates: start: 20100511, end: 20100514
  11. ANTIBIOTIC NOS [Concomitant]
     Indication: INFECTION
     Dates: start: 20100808, end: 20100822
  12. MABTHERA [Suspect]
     Dosage: INFUSION
     Route: 065
  13. CYTARABINE [Suspect]
     Route: 042
  14. CISPLATIN [Suspect]
     Indication: MANTLE CELL LYMPHOMA
     Route: 042
  15. MABTHERA [Suspect]
     Route: 042
  16. CARMUSTINE [Suspect]
     Indication: MANTLE CELL LYMPHOMA
     Dates: start: 20100729, end: 20100729
  17. CASPOFUNGIN [Concomitant]
     Indication: INFECTION
     Route: 042
     Dates: start: 20100814, end: 20100821
  18. CYTARABINE [Suspect]
     Indication: MANTLE CELL LYMPHOMA
     Route: 042
  19. MELPHALAN [Suspect]
     Indication: MANTLE CELL LYMPHOMA
     Route: 042
     Dates: start: 20100803, end: 20100803

REACTIONS (3)
  - FEBRILE BONE MARROW APLASIA [None]
  - THROMBOCYTOPENIA [None]
  - SUBDURAL HAEMATOMA [None]
